FAERS Safety Report 5531542-3 (Version None)
Quarter: 2007Q4

REPORT INFORMATION
  Report Type: 
  Country: None (occurrence: None)
  Receive Date: 20071203
  Receipt Date: 20071122
  Transmission Date: 20080405
  Serious: Yes (Other)
  Sender: FDA-Public Use
  Company Number: PHNU2007BG03928

PATIENT
  Age: 80 Year
  Sex: Male
  Weight: 70 kg

DRUGS (6)
  1. XALATAN [Concomitant]
  2. TENAXUM [Concomitant]
  3. PREDUCTAL [Concomitant]
  4. FURANTHRIL [Concomitant]
     Indication: HYPERTENSION
  5. SPIRONOLACTONE [Concomitant]
     Indication: HYPERTENSION
  6. MIACALCIN [Suspect]
     Indication: HIP FRACTURE
     Dosage: 200 IU/DAY
     Route: 045
     Dates: start: 20071108

REACTIONS (1)
  - BLINDNESS [None]
